FAERS Safety Report 5506052-X (Version None)
Quarter: 2007Q4

REPORT INFORMATION
  Report Type: 
  Country: None (occurrence: None)
  Receive Date: 20071101
  Receipt Date: 20071018
  Transmission Date: 20080405
  Serious: Yes (Hospitalization)
  Sender: FDA-Public Use
  Company Number: 02100-EUR-07-0148

PATIENT
  Sex: Male

DRUGS (4)
  1. CILOSTAZOL [Suspect]
     Indication: INTERMITTENT CLAUDICATION
     Dosage: 200 MG ORAL
     Route: 048
     Dates: start: 20070402, end: 20070719
  2. CANDESARTAN CILEXETIL [Concomitant]
  3. NOVOFORM [Concomitant]
  4. ACETYLSALICYLIC ACID SRT [Concomitant]

REACTIONS (1)
  - PERIPHERAL ARTERY ANEURYSM [None]
